FAERS Safety Report 19976251 (Version 1)
Quarter: 2021Q4

REPORT INFORMATION
  Report Type: Spontaneous
  Country: FR (occurrence: FR)
  Receive Date: 20211020
  Receipt Date: 20211020
  Transmission Date: 20220303
  Serious: Yes (Hospitalization)
  Sender: FDA-Public Use
  Company Number: FR-ABBVIE-21K-056-4125676-00

PATIENT
  Age: 76 Year
  Sex: Female

DRUGS (5)
  1. DEPAKOTE [Suspect]
     Active Substance: DIVALPROEX SODIUM
     Indication: Toxicity to various agents
     Route: 048
     Dates: start: 20131016, end: 20131016
  2. LORMETAZEPAM [Suspect]
     Active Substance: LORMETAZEPAM
     Indication: Toxicity to various agents
     Route: 048
     Dates: start: 20131016, end: 20131016
  3. ESCITALOPRAM OXALATE [Suspect]
     Active Substance: ESCITALOPRAM OXALATE
     Indication: Toxicity to various agents
     Route: 048
     Dates: start: 20131016, end: 20131016
  4. MIANSERIN HYDROCHLORIDE [Suspect]
     Active Substance: MIANSERIN HYDROCHLORIDE
     Indication: Toxicity to various agents
     Route: 048
     Dates: start: 20131016, end: 20131016
  5. PRAZEPAM [Suspect]
     Active Substance: PRAZEPAM
     Indication: Toxicity to various agents
     Route: 048
     Dates: start: 20131016, end: 20131016

REACTIONS (2)
  - Altered state of consciousness [Recovered/Resolved]
  - Hypothermia [Recovered/Resolved]

NARRATIVE: CASE EVENT DATE: 20131016
